FAERS Safety Report 24401056 (Version 1)
Quarter: 2024Q4

REPORT INFORMATION
  Report Type: Spontaneous
  Country: GB (occurrence: GB)
  Receive Date: 20241006
  Receipt Date: 20241006
  Transmission Date: 20250114
  Serious: Yes (Other)
  Sender: ESPERION THERAPEUTICS
  Company Number: None

PATIENT
  Age: 84 Year
  Sex: Female
  Weight: 62 kg

DRUGS (14)
  1. BEMPEDOIC ACID [Suspect]
     Active Substance: BEMPEDOIC ACID
     Indication: Ill-defined disorder
     Dosage: UNK
     Route: 048
     Dates: start: 20240913, end: 20240920
  2. DIAZEPAM [Concomitant]
     Active Substance: DIAZEPAM
     Indication: Ill-defined disorder
     Dosage: UNK UNK, QD (TAKE ONE 2-3 HOURS PRIOR TO PROCEDURE))
     Route: 065
     Dates: start: 20240823, end: 20240824
  3. OMEPRAZOLE [Concomitant]
     Active Substance: OMEPRAZOLE
     Indication: Ill-defined disorder
     Dosage: UNK (5-10 MLS FOUR TIMES DAILY AS REQUIRED, ANISEED))
     Route: 065
     Dates: start: 20221103, end: 20240813
  4. LACTULOSE [Concomitant]
     Active Substance: LACTULOSE
     Indication: Ill-defined disorder
     Dosage: UNK (TWO 5ML SPOONFULS TO BE TAKEN TWICE A DAY)
     Route: 065
     Dates: start: 20230915, end: 20240813
  5. COCODAMOL [Concomitant]
     Active Substance: ACETAMINOPHEN\CODEINE PHOSPHATE
     Indication: Ill-defined disorder
     Dosage: UNK (1-2 FOUR TIMES DAILY AS REQUIRED)
     Route: 065
     Dates: start: 20240513, end: 20240628
  6. SODIUM ALGINATE [Concomitant]
     Active Substance: SODIUM ALGINATE
     Indication: Ill-defined disorder
     Dosage: UNK (5-10ML FOUR TIMES DAILY AS REQUIRED)
     Route: 065
     Dates: start: 20240513
  7. AMLODIPINE [Concomitant]
     Active Substance: AMLODIPINE BESYLATE
     Indication: Ill-defined disorder
     Dosage: UNK UNK, QD (ONE TO BE TAKEN EACH DAY - REDUCED FROM 10MG DU...)
     Route: 065
     Dates: start: 20240619
  8. CANDESARTAN [Concomitant]
     Active Substance: CANDESARTAN
     Indication: Ill-defined disorder
     Dosage: UNK (ONE TO BE TAKEN TWICE A DAY (SPACE OUT MORNING ...)
     Route: 065
     Dates: start: 20240619
  9. EZETIMIBE [Concomitant]
     Active Substance: EZETIMIBE
     Indication: Ill-defined disorder
     Dosage: UNK UNK, QD (TAKE ONE DAILY)
     Route: 065
     Dates: start: 20240619
  10. LEVOTHYROXINE [Concomitant]
     Active Substance: LEVOTHYROXINE
     Indication: Ill-defined disorder
     Dosage: UNK (ONE TO BE TAKEN EACH MORNING PREFERABLY 30-60 M...)
     Route: 065
     Dates: start: 20240619
  11. MIRABEGRON [Concomitant]
     Active Substance: MIRABEGRON
     Indication: Ill-defined disorder
     Dosage: UNK (ONE TO BE TAKEN EACH DAY)
     Route: 065
     Dates: start: 20240619
  12. OMEPRAZOLE [Concomitant]
     Active Substance: OMEPRAZOLE
     Indication: Ill-defined disorder
     Dosage: UNK (ONE TO BE TAKEN ONCE OR TWICE A DAY AS PER NEED...)
     Route: 065
     Dates: start: 20240619
  13. CODEINE PHOSPHATE [Concomitant]
     Active Substance: CODEINE PHOSPHATE
     Indication: Ill-defined disorder
     Dosage: UNK (ONE TABLET WHEN NEEDED ON TOP OF REGULAR PARACE...)
     Route: 065
     Dates: start: 20240628
  14. BEMPEDOIC ACID [Concomitant]
     Active Substance: BEMPEDOIC ACID
     Indication: Ill-defined disorder
     Dosage: UNK UNK , QD (TAKE ONE DAILY - FOR TARGET CHOLESTEROL NON HDL...)
     Route: 065
     Dates: start: 20240913, end: 20240923

REACTIONS (1)
  - Dizziness [Recovered/Resolved]

NARRATIVE: CASE EVENT DATE: 20240913
